FAERS Safety Report 10631956 (Version 1)
Quarter: 2014Q4

REPORT INFORMATION
  Report Type: Spontaneous
  Country: US (occurrence: US)
  Receive Date: 20141205
  Receipt Date: 20141205
  Transmission Date: 20150529
  Serious: No
  Sender: FDA-Public Use
  Company Number: US-BRISTOL-MYERS SQUIBB COMPANY-21588876

PATIENT
  Age: 85 Year
  Sex: Female
  Weight: 59.86 kg

DRUGS (10)
  1. ELIQUIS [Suspect]
     Active Substance: APIXABAN
     Indication: CEREBROVASCULAR ACCIDENT PROPHYLAXIS
     Dosage: DOSE=2.5MG
     Route: 048
     Dates: start: 2014
  2. VITAMIN C [Concomitant]
     Active Substance: ASCORBIC ACID
  3. BETACAROTENE [Concomitant]
     Active Substance: .BETA.-CAROTENE
  4. VITAMIN D3 [Concomitant]
     Active Substance: CHOLECALCIFEROL
  5. BIOTIN [Concomitant]
     Active Substance: BIOTIN
  6. BENICAR [Concomitant]
     Active Substance: OLMESARTAN MEDOXOMIL
  7. CALCIUM CITRATE [Concomitant]
     Active Substance: CALCIUM CITRATE
  8. GLUCOSAMINE [Concomitant]
     Active Substance: GLUCOSAMINE
  9. CALCITONIN [Concomitant]
     Active Substance: CALCITONIN
  10. CHONDROITIN [Concomitant]
     Active Substance: CHONDROITIN

REACTIONS (3)
  - Wrong technique in drug usage process [Unknown]
  - Product quality issue [Unknown]
  - Diarrhoea [Unknown]

NARRATIVE: CASE EVENT DATE: 2014
